FAERS Safety Report 14322452 (Version 1)
Quarter: 2017Q4

REPORT INFORMATION
  Report Type: Other
  Country: ES (occurrence: ES)
  Receive Date: 20171225
  Receipt Date: 20171225
  Transmission Date: 20180321
  Serious: Yes (Hospitalization)
  Sender: FDA-Public Use
  Company Number: ES-GLENMARK PHARMACEUTICALS-2017GMK030169

PATIENT

DRUGS (2)
  1. ESOMEPRAZOL                        /01479301/ [Suspect]
     Active Substance: ESOMEPRAZOLE
     Indication: GASTROOESOPHAGEAL REFLUX DISEASE
     Dosage: 40 MG QD (40 MG CADA 24 HOURS)
     Route: 048
     Dates: start: 20170822
  2. OMEPRAZOLE. [Suspect]
     Active Substance: OMEPRAZOLE
     Indication: GASTROOESOPHAGEAL REFLUX DISEASE
     Dosage: 40 MG PER 12 HOURS
     Route: 048
     Dates: start: 20170817, end: 20171021

REACTIONS (2)
  - Pancytopenia [Recovered/Resolved]
  - Vitamin B12 decreased [Recovered/Resolved]

NARRATIVE: CASE EVENT DATE: 20170923
